FAERS Safety Report 23464167 (Version 2)
Quarter: 2024Q1

REPORT INFORMATION
  Report Type: Spontaneous
  Country: US (occurrence: US)
  Receive Date: 20240201
  Receipt Date: 20240329
  Transmission Date: 20240410
  Serious: No
  Sender: FDA-Public Use
  Company Number: US-009507513-2401USA015227

PATIENT
  Sex: Male

DRUGS (2)
  1. EMEND [Suspect]
     Active Substance: APREPITANT
     Dosage: UNK
     Route: 048
  2. EMEND (FOSAPREPITANT DIMEGLUMINE) [Suspect]
     Active Substance: FOSAPREPITANT DIMEGLUMINE
     Dosage: UNK
     Route: 042
     Dates: start: 202401

REACTIONS (5)
  - Product contamination physical [Unknown]
  - Product reconstitution quality issue [Unknown]
  - Product use issue [Unknown]
  - Product preparation error [Unknown]
  - No adverse event [Unknown]

NARRATIVE: CASE EVENT DATE: 20240124
